FAERS Safety Report 9080451 (Version 1)
Quarter: 2013Q1

REPORT INFORMATION
  Report Type: Report from Study
  Country: US (occurrence: US)
  Receive Date: 20130130
  Receipt Date: 20130130
  Transmission Date: 20140127
  Serious: No
  Sender: FDA-Public Use
  Company Number: US-ABBOTT-12P-163-0947736-00

PATIENT
  Age: 34 None
  Sex: Female

DRUGS (4)
  1. HUMIRA 40 MG/0.8 ML PEN [Suspect]
     Indication: PSORIASIS
     Dates: start: 2009, end: 20120522
  2. DEPO-PROVERA [Concomitant]
     Indication: CONTRACEPTION
  3. WELLBUTRIN [Concomitant]
     Indication: ANXIETY
  4. CELEXA [Concomitant]
     Indication: ANXIETY

REACTIONS (4)
  - Hypersensitivity [Not Recovered/Not Resolved]
  - Psoriasis [Not Recovered/Not Resolved]
  - Pruritus [Not Recovered/Not Resolved]
  - Rash [Unknown]
